FAERS Safety Report 10497670 (Version 3)
Quarter: 2014Q4

REPORT INFORMATION
  Report Type: Spontaneous
  Country: AU (occurrence: AU)
  Receive Date: 20141006
  Receipt Date: 20141229
  Transmission Date: 20150528
  Serious: Yes (Other)
  Sender: FDA-Public Use
  Company Number: AU-AMGEN-AUSSP2014075739

PATIENT
  Age: 79 Year
  Sex: Female

DRUGS (1)
  1. PROLIA [Suspect]
     Active Substance: DENOSUMAB
     Indication: OSTEOPOROSIS
     Dosage: UNK
     Route: 065
     Dates: start: 20140904

REACTIONS (4)
  - Impaired healing [Not Recovered/Not Resolved]
  - Pain in extremity [Recovered/Resolved]
  - Femur fracture [Not Recovered/Not Resolved]
  - Gait disturbance [Unknown]
